FAERS Safety Report 11741955 (Version 1)
Quarter: 2015Q4

REPORT INFORMATION
  Report Type: Spontaneous
  Country: US (occurrence: None)
  Receive Date: 20151113
  Receipt Date: 20151113
  Transmission Date: 20160304
  Serious: No
  Sender: FDA-Public Use
  Company Number: None

PATIENT
  Age: 44 Year
  Sex: Female
  Weight: 96.62 kg

DRUGS (3)
  1. PROGESTERONE. [Concomitant]
     Active Substance: PROGESTERONE
  2. TENUATE [Concomitant]
     Active Substance: DIETHYLPROPION HYDROCHLORIDE
  3. PARAGARD T 380A [Suspect]
     Active Substance: COPPER

REACTIONS (11)
  - Depression [None]
  - Abdominal distension [None]
  - Panic attack [None]
  - Snoring [None]
  - Pain [None]
  - Migraine [None]
  - Weight increased [None]
  - Mood swings [None]
  - Alopecia [None]
  - Fatigue [None]
  - Plantar fasciitis [None]
